FAERS Safety Report 8570273-2 (Version None)
Quarter: 2012Q3

REPORT INFORMATION
  Report Type: 
  Country: None (occurrence: None)
  Receive Date: 20120803
  Receipt Date: 20120720
  Transmission Date: 20120928
  Serious: Yes (Other)
  Sender: FDA-Public Use
  Company Number: CHPA2012US016415

PATIENT
  Sex: Female

DRUGS (5)
  1. BENEFIBER W/ WHEAT DEXTRIN [Suspect]
     Indication: CONSTIPATION
     Dosage: 2 TSP, QD
     Route: 048
     Dates: start: 20110101, end: 20120101
  2. ANTICOAGULANTS [Concomitant]
     Dosage: UNK, UNK
  3. ANTIHYPERTENSIVES [Concomitant]
     Dosage: UNK, UNK
  4. BENEFIBER W/ WHEAT DEXTRIN [Suspect]
     Dosage: 2 TSP, ONCE OR TWICE A WEEK
     Route: 048
     Dates: start: 20120101
  5. MIRALAX [Concomitant]
     Dosage: UNK, UNK

REACTIONS (5)
  - HIP FRACTURE [None]
  - OFF LABEL USE [None]
  - CONDITION AGGRAVATED [None]
  - HERNIA [None]
  - THERAPEUTIC RESPONSE UNEXPECTED [None]
